FAERS Safety Report 8257643-7 (Version None)
Quarter: 2012Q2

REPORT INFORMATION
  Report Type: 
  Country: None (occurrence: None)
  Receive Date: 20120403
  Receipt Date: 20120329
  Transmission Date: 20120825
  Serious: Yes (Other)
  Sender: FDA-Public Use
  Company Number: US-MERCK-1203USA03915

PATIENT
  Age: 64 Year
  Sex: Female
  Weight: 82 kg

DRUGS (9)
  1. LEVOTHYROXINE SODIUM [Concomitant]
     Indication: THYROID DISORDER
     Route: 065
  2. ZOCOR [Suspect]
     Indication: BLOOD CHOLESTEROL
     Route: 048
  3. ASPIRIN [Concomitant]
     Route: 065
  4. CALCIUM (UNSPECIFIED) [Concomitant]
     Route: 065
  5. ZOCOR [Suspect]
     Indication: CARDIAC DISORDER
     Route: 048
  6. MEVACOR [Suspect]
     Indication: CARDIAC DISORDER
     Route: 048
  7. MEVACOR [Suspect]
     Indication: BLOOD CHOLESTEROL
     Route: 048
  8. VITAMINS (UNSPECIFIED) [Concomitant]
     Route: 065
  9. VITAMIN D (UNSPECIFIED) [Concomitant]
     Route: 065

REACTIONS (6)
  - MALAISE [None]
  - ADVERSE EVENT [None]
  - CHEST PAIN [None]
  - NAUSEA [None]
  - DIZZINESS [None]
  - MYOCARDIAL INFARCTION [None]
